FAERS Safety Report 7765526 (Version 5)
Quarter: 2014Q2

REPORT INFORMATION
  Report Type: Spontaneous
  Country: FR (occurrence: FR)
  Receive Date: 20110119
  Receipt Date: 20140507
  Transmission Date: 20141212
  Serious: Yes (Other)
  Sender: FDA-Public Use
  Company Number: FR-ASTRAZENECA-2011SE01750

PATIENT
  Age: 68 Year
  Sex: Female
  Weight: 95 kg

DRUGS (4)
  1. TENORDATE [Suspect]
     Indication: HYPERTENSION
     Dosage: 1 DF DAILY
     Route: 048
     Dates: start: 2007
  2. CRESTOR [Suspect]
     Indication: HYPERCHOLESTEROLAEMIA
     Route: 048
     Dates: start: 2004
  3. COTRIATEC [Suspect]
     Indication: HYPERTENSION
     Route: 048
     Dates: start: 2007
  4. MEDIATOR [Suspect]
     Indication: CENTRAL OBESITY
     Route: 048
     Dates: start: 2002, end: 2009

REACTIONS (5)
  - Aortic valve incompetence [Unknown]
  - Malaise [Unknown]
  - Vertigo [Unknown]
  - Arrhythmia [Unknown]
  - Bradycardia [Unknown]
